FAERS Safety Report 11823917 (Version 1)
Quarter: 2015Q4

REPORT INFORMATION
  Report Type: Spontaneous
  Country: HK (occurrence: HK)
  Receive Date: 20151210
  Receipt Date: 20151210
  Transmission Date: 20160305
  Serious: Yes (Life-Threatening, Hospitalization)
  Sender: FDA-Public Use
  Company Number: PHHY2015HK160804

PATIENT
  Age: 18 Month
  Sex: Male
  Weight: 12 kg

DRUGS (1)
  1. IMIPRAMINE [Suspect]
     Active Substance: IMIPRAMINE
     Indication: PRODUCT USED FOR UNKNOWN INDICATION
     Route: 048

REACTIONS (11)
  - Loss of consciousness [Recovered/Resolved]
  - Eye movement disorder [Unknown]
  - Accidental exposure to product by child [Unknown]
  - Metabolic acidosis [Recovering/Resolving]
  - Muscle twitching [Unknown]
  - Electrocardiogram abnormal [Recovering/Resolving]
  - Toxicity to various agents [Recovering/Resolving]
  - Hyperventilation [Recovering/Resolving]
  - Hypotension [Recovering/Resolving]
  - Somnolence [Unknown]
  - Sinus tachycardia [Recovering/Resolving]
